FAERS Safety Report 8814766 (Version 1)
Quarter: 2012Q4

REPORT INFORMATION
  Report Type: 
  Country: US (occurrence: US)
  Receive Date: 20120928
  Receipt Date: 20120928
  Transmission Date: 20130627
  Serious: Yes (Other)
  Sender: FDA-Public Use
  Company Number: US-TEVA-360868USA

PATIENT
  Sex: Female

DRUGS (1)
  1. CLARAVIS [Suspect]

REACTIONS (8)
  - Loss of consciousness [Unknown]
  - Weight increased [Unknown]
  - Memory impairment [Unknown]
  - Somnolence [Unknown]
  - Thinking abnormal [Unknown]
  - Cardiac murmur [Unknown]
  - Headache [Unknown]
  - Dyspnoea [Unknown]
